FAERS Safety Report 19465167 (Version 3)
Quarter: 2022Q2

REPORT INFORMATION
  Report Type: Report from Study
  Country: DE (occurrence: DE)
  Receive Date: 20210627
  Receipt Date: 20220608
  Transmission Date: 20220721
  Serious: Yes (Hospitalization)
  Sender: FDA-Public Use
  Company Number: DE-NOVARTISPH-NVSC2021DE031442

PATIENT
  Sex: Female

DRUGS (6)
  1. HYRIMOZ [Suspect]
     Active Substance: ADALIMUMAB-ADAZ
     Indication: Psoriatic arthropathy
     Dosage: 40 MG, Q2W
     Route: 065
     Dates: start: 20200402, end: 20201005
  2. METHOTREXATE [Suspect]
     Active Substance: METHOTREXATE
     Indication: Psoriatic arthropathy
     Dosage: 12.5 MG
     Route: 065
     Dates: start: 20100101, end: 20191129
  3. METHOTREXATE [Suspect]
     Active Substance: METHOTREXATE
     Dosage: 7.5 MG, QW
     Route: 058
     Dates: start: 20200118, end: 20200916
  4. METHOTREXATE [Suspect]
     Active Substance: METHOTREXATE
     Dosage: 15 MG
     Route: 065
     Dates: start: 20200118, end: 20200916
  5. STELARA [Concomitant]
     Active Substance: USTEKINUMAB
     Indication: Product used for unknown indication
     Dosage: 90 MG
     Route: 065
     Dates: start: 20190708, end: 20191111
  6. CELECOXIB [Concomitant]
     Active Substance: CELECOXIB
     Indication: Product used for unknown indication
     Dosage: 400 MG
     Route: 065
     Dates: start: 20181121, end: 20191005

REACTIONS (7)
  - Anxiety [Unknown]
  - Panic disorder [Unknown]
  - Agoraphobia [Unknown]
  - Back pain [Unknown]
  - Influenza like illness [Unknown]
  - Diarrhoea [Unknown]
  - Vomiting [Unknown]

NARRATIVE: CASE EVENT DATE: 20200630
